FAERS Safety Report 17361066 (Version 1)
Quarter: 2020Q1

REPORT INFORMATION
  Report Type: Spontaneous
  Country: US (occurrence: US)
  Receive Date: 20200203
  Receipt Date: 20200203
  Transmission Date: 20200409
  Serious: No
  Sender: FDA-Public Use
  Company Number: US-SA-2020SA027834

PATIENT
  Sex: Female

DRUGS (1)
  1. ARAVA [Suspect]
     Active Substance: LEFLUNOMIDE
     Dosage: 20 MG, QD
     Route: 065
     Dates: start: 201907

REACTIONS (4)
  - Dizziness [Unknown]
  - Abdominal pain upper [Unknown]
  - Dyspepsia [Unknown]
  - Nausea [Unknown]

NARRATIVE: CASE EVENT DATE: 201911
